FAERS Safety Report 5103737-4 (Version None)
Quarter: 2006Q3

REPORT INFORMATION
  Report Type: 
  Country: None (occurrence: None)
  Receive Date: 20060913
  Receipt Date: 20060221
  Transmission Date: 20061208
  Serious: Yes (Hospitalization, Other)
  Sender: FDA-Public Use
  Company Number: PHBS2006JP02915

PATIENT
  Age: 70 Year
  Sex: Male

DRUGS (3)
  1. LOXONIN [Concomitant]
  2. URINORM [Concomitant]
  3. DIOVAN [Suspect]
     Indication: HYPERTENSION
     Dosage: 80 MG/DAY
     Route: 048
     Dates: start: 20040401, end: 20060215

REACTIONS (4)
  - ABDOMINAL PAIN UPPER [None]
  - AUTOIMMUNE DISORDER [None]
  - PANCREATITIS [None]
  - VASCULITIS [None]
